FAERS Safety Report 19453222 (Version 3)
Quarter: 2021Q2

REPORT INFORMATION
  Report Type: Spontaneous
  Country: US (occurrence: US)
  Receive Date: 20210623
  Receipt Date: 20210626
  Transmission Date: 20210717
  Serious: No
  Sender: FDA-Public Use
  Company Number: US-UNITED THERAPEUTICS-UNT-2021-011618

PATIENT
  Age: 46 Year
  Sex: Female
  Weight: 91.38 kg

DRUGS (2)
  1. REMODULIN [Suspect]
     Active Substance: TREPROSTINIL
     Indication: PULMONARY ARTERIAL HYPERTENSION
     Dosage: UNK, CONTINUING
     Route: 058
     Dates: start: 20210319
  2. REMODULIN [Suspect]
     Active Substance: TREPROSTINIL
     Dosage: 0.014 ?G/KG, CONTINUING
     Route: 058
     Dates: start: 2021

REACTIONS (8)
  - Blood potassium decreased [Unknown]
  - Headache [Unknown]
  - Renal disorder [Unknown]
  - Infusion site pain [Unknown]
  - Dizziness exertional [Unknown]
  - Patient-device incompatibility [Unknown]
  - Blood pressure decreased [Unknown]
  - Migraine [Unknown]

NARRATIVE: CASE EVENT DATE: 2021
